FAERS Safety Report 5888924-X (Version None)
Quarter: 2008Q3

REPORT INFORMATION
  Report Type: 
  Country: None (occurrence: None)
  Receive Date: 20080916
  Receipt Date: 20080902
  Transmission Date: 20090109
  Serious: Yes (Hospitalization)
  Sender: FDA-Public Use
  Company Number: 004263

PATIENT
  Age: 71 Year
  Sex: Male

DRUGS (1)
  1. PLETAL [Suspect]
     Indication: CEREBRAL INFARCTION
     Dates: start: 20060303, end: 20080825

REACTIONS (2)
  - DYSURIA [None]
  - URINARY RETENTION [None]
